FAERS Safety Report 9353761 (Version 1)
Quarter: 2013Q2

REPORT INFORMATION
  Report Type: Spontaneous
  Country: IT (occurrence: None)
  Receive Date: 20130612
  Receipt Date: 20130612
  Transmission Date: 20140414
  Serious: Yes (Hospitalization)
  Sender: FDA-Public Use
  Company Number: AG-2013-1780

PATIENT
  Sex: Male

DRUGS (1)
  1. BUSULFAN [Suspect]
     Indication: PRODUCT USED FOR UNKNOWN INDICATION

REACTIONS (4)
  - Ascites [None]
  - Hepatomegaly [None]
  - Hyperbilirubinaemia [None]
  - Hepatic vein occlusion [None]
